FAERS Safety Report 5728286-1 (Version None)
Quarter: 2008Q2

REPORT INFORMATION
  Report Type: 
  Country: None (occurrence: None)
  Receive Date: 20080502
  Receipt Date: 20080502
  Transmission Date: 20081010
  Serious: Yes (Hospitalization)
  Sender: FDA-Public Use
  Company Number: None

PATIENT
  Sex: Male
  Weight: 38.4 kg

DRUGS (1)
  1. PEG-ASPARAGINASE [Suspect]
     Indication: T-CELL TYPE ACUTE LEUKAEMIA
     Dosage: 3000 UNITS X4 IM
     Route: 030
     Dates: start: 20070903, end: 20080307

REACTIONS (5)
  - ABDOMINAL PAIN [None]
  - COUGH [None]
  - DYSPNOEA [None]
  - RASH PRURITIC [None]
  - URTICARIA [None]
